FAERS Safety Report 12423848 (Version 1)
Quarter: 2016Q2

REPORT INFORMATION
  Report Type: Spontaneous
  Country: US (occurrence: US)
  Receive Date: 20160601
  Receipt Date: 20160601
  Transmission Date: 20160815
  Serious: No
  Sender: FDA-Public Use
  Company Number: US-NOVEN PHARMACEUTICALS, INC.-US2015000942

PATIENT
  Age: 17 Year
  Sex: Male

DRUGS (2)
  1. MULTIVITAMIN [Concomitant]
     Active Substance: VITAMINS
  2. DAYTRANA [Suspect]
     Active Substance: METHYLPHENIDATE
     Indication: ATTENTION DEFICIT/HYPERACTIVITY DISORDER
     Dosage: 30 MG, UNKNOWN
     Route: 062
     Dates: start: 20151009

REACTIONS (5)
  - Tremor [Unknown]
  - Decreased appetite [Unknown]
  - Drug dose omission [Recovered/Resolved]
  - Product quality issue [Unknown]
  - Diplopia [Unknown]

NARRATIVE: CASE EVENT DATE: 2015
